FAERS Safety Report 12737711 (Version 1)
Quarter: 2016Q3

REPORT INFORMATION
  Report Type: Spontaneous
  Country: US (occurrence: US)
  Receive Date: 20160912
  Receipt Date: 20160912
  Transmission Date: 20161109
  Serious: Yes (Life-Threatening, Hospitalization)
  Sender: FDA-Public Use
  Company Number: None

PATIENT
  Age: 91 Year
  Sex: Female
  Weight: 66.4 kg

DRUGS (1)
  1. WARFARIN [Suspect]
     Active Substance: WARFARIN

REACTIONS (2)
  - Fall [None]
  - Cerebral haemorrhage [None]

NARRATIVE: CASE EVENT DATE: 20160506
